FAERS Safety Report 4306915-7 (Version None)
Quarter: 2004Q1

REPORT INFORMATION
  Report Type: 
  Country: None (occurrence: None)
  Receive Date: 20040227
  Receipt Date: 20031128
  Transmission Date: 20041129
  Serious: Yes (Hospitalization, Other)
  Sender: FDA-Public Use
  Company Number: PHFR2003GB04600

PATIENT
  Age: 76 Year
  Sex: Male

DRUGS (7)
  1. GLEEVEC [Suspect]
     Indication: GASTROINTESTINAL STROMAL TUMOUR
     Dosage: 200 MG, BID
     Route: 048
     Dates: start: 20031031, end: 20031128
  2. ATENOLOL [Concomitant]
     Dosage: 25 MG UNK
     Route: 048
  3. LANSOPRAZOLE [Concomitant]
     Dosage: 30MG UNK
     Route: 048
  4. FRUSEMIDE [Concomitant]
     Dosage: 80MG UNK
     Route: 048
  5. ATORVASTATIN [Concomitant]
     Dosage: 10 MG UNK
     Route: 048
  6. AMLODIPINE [Concomitant]
     Dosage: 5MG UNK
     Route: 048
  7. INSULIN                                 /N/A/ [Concomitant]
     Route: 048

REACTIONS (13)
  - ABDOMINAL PAIN [None]
  - ANAEMIA [None]
  - ANOREXIA [None]
  - ASCITES [None]
  - BLOOD CREATININE INCREASED [None]
  - CARDIAC MURMUR [None]
  - DECREASED APPETITE [None]
  - DYSPNOEA [None]
  - FLUID RETENTION [None]
  - PITTING OEDEMA [None]
  - RENAL FAILURE ACUTE [None]
  - RENAL IMPAIRMENT [None]
  - TRICUSPID VALVE INCOMPETENCE [None]
